FAERS Safety Report 6717028-9 (Version None)
Quarter: 2010Q2

REPORT INFORMATION
  Report Type: 
  Country: None (occurrence: None)
  Receive Date: 20100505
  Receipt Date: 20100426
  Transmission Date: 20101027
  Serious: Yes (Other)
  Sender: FDA-Public Use
  Company Number: US-1180863

PATIENT
  Sex: Female
  Weight: 65.318 kg

DRUGS (1)
  1. TIMOLOL MALEATE [Suspect]
     Indication: GLAUCOMA
     Dosage: (1GTT QD OU, 1 GTT OU QD OPHTHALMIC)
     Route: 047
     Dates: end: 20100201

REACTIONS (10)
  - ASTHENOPIA [None]
  - BLOOD PRESSURE INCREASED [None]
  - CHEST PAIN [None]
  - COORDINATION ABNORMAL [None]
  - EYE DISCHARGE [None]
  - EYE PAIN [None]
  - FATIGUE [None]
  - HYPERSENSITIVITY [None]
  - LYMPHADENOPATHY [None]
  - VISUAL IMPAIRMENT [None]
